FAERS Safety Report 25643329 (Version 1)
Quarter: 2025Q3

REPORT INFORMATION
  Report Type: Report from Study
  Country: US (occurrence: US)
  Receive Date: 20250805
  Receipt Date: 20250805
  Transmission Date: 20251020
  Serious: Yes (Death, Other)
  Sender: GILEAD
  Company Number: US-GILEAD-2025-0718897

PATIENT
  Age: 65 Year
  Sex: Female

DRUGS (8)
  1. AZTREONAM LYSINE [Suspect]
     Active Substance: AZTREONAM LYSINE
     Indication: Cystic fibrosis lung
     Dosage: INHALE 75MG VIA NEBULIZER THREE TIMES A DAY (RECONSTITUTE WITH PROVIDED DILUENT AND INHALE THE CONTE
     Route: 055
     Dates: start: 202505
  2. AZTREONAM LYSINE [Suspect]
     Active Substance: AZTREONAM LYSINE
     Indication: Cystic fibrosis
  3. ALYFTREK [Suspect]
     Active Substance: DEUTIVACAFTOR\TEZACAFTOR\VANZACAFTOR
     Indication: Cystic fibrosis lung
     Dosage: 2 DOSAGE FORM, QD (TAKE 2 TABLETS BY MOUTH DAILY)
     Route: 048
     Dates: start: 202501
  4. FASENRA [Suspect]
     Active Substance: BENRALIZUMAB
     Indication: Bronchiectasis
     Route: 058
     Dates: start: 202312
  5. FASENRA [Suspect]
     Active Substance: BENRALIZUMAB
     Indication: Asthma
  6. TRIKAFTA [Suspect]
     Active Substance: ELEXACAFTOR\IVACAFTOR\TEZACAFTOR
     Indication: Cystic fibrosis lung
     Route: 048
     Dates: start: 202506
  7. TOBRAMYCIN [Concomitant]
     Active Substance: TOBRAMYCIN
  8. PULMOZYME [Concomitant]
     Active Substance: DORNASE ALFA

REACTIONS (6)
  - Death [Fatal]
  - Productive cough [Unknown]
  - Gastrostomy tube site complication [Unknown]
  - Foot fracture [Unknown]
  - Gait inability [Unknown]
  - Arthropathy [Unknown]

NARRATIVE: CASE EVENT DATE: 20250723
